FAERS Safety Report 14248478 (Version 2)
Quarter: 2017Q4

REPORT INFORMATION
  Report Type: Spontaneous
  Country: JP (occurrence: JP)
  Receive Date: 20171204
  Receipt Date: 20171213
  Transmission Date: 20180321
  Serious: Yes (Hospitalization, Other)
  Sender: FDA-Public Use
  Company Number: JP-SHIRE-JP201730290AA

PATIENT
  Age: 56 Year
  Sex: Male
  Weight: 71.5 kg

DRUGS (13)
  1. AGRYLIN [Suspect]
     Active Substance: ANAGRELIDE HYDROCHLORIDE
     Dosage: 1 MG/DAY
     Route: 048
  2. AGRYLIN [Suspect]
     Active Substance: ANAGRELIDE HYDROCHLORIDE
     Dosage: 2.5 MG/DAY
     Route: 048
  3. HYDREA [Concomitant]
     Active Substance: HYDROXYUREA
     Dosage: 1500 MG/WEEK
     Route: 065
  4. HYDREA [Concomitant]
     Active Substance: HYDROXYUREA
     Dosage: 3000 MG/WEEK
     Route: 065
  5. AGRYLIN [Suspect]
     Active Substance: ANAGRELIDE HYDROCHLORIDE
     Indication: ESSENTIAL THROMBOCYTHAEMIA
     Dosage: 0.5 MG/DAY
     Route: 048
     Dates: start: 20160912
  6. AGRYLIN [Suspect]
     Active Substance: ANAGRELIDE HYDROCHLORIDE
     Dosage: 2 MG/DAY
     Route: 048
  7. AGRYLIN [Suspect]
     Active Substance: ANAGRELIDE HYDROCHLORIDE
     Dosage: 3 MG/DAY
     Route: 048
  8. HYDREA [Concomitant]
     Active Substance: HYDROXYUREA
     Dosage: 500 MG/DAY
     Route: 065
  9. AGRYLIN [Suspect]
     Active Substance: ANAGRELIDE HYDROCHLORIDE
     Dosage: 1.5 MG/DAY
     Route: 048
  10. HYDREA [Concomitant]
     Active Substance: HYDROXYUREA
     Dosage: 2000 MG/WEEK
     Route: 065
  11. AGRYLIN [Suspect]
     Active Substance: ANAGRELIDE HYDROCHLORIDE
     Dosage: 1.5 MG/DAY
     Route: 048
  12. HYDREA [Concomitant]
     Active Substance: HYDROXYUREA
     Indication: PRODUCT USED FOR UNKNOWN INDICATION
     Dosage: 1000 MG/WEEK
     Route: 065
  13. AGRYLIN [Suspect]
     Active Substance: ANAGRELIDE HYDROCHLORIDE
     Dosage: 1 MG/DAY
     Route: 048

REACTIONS (2)
  - Osteomyelitis [Recovered/Resolved]
  - Palpitations [Unknown]
